FAERS Safety Report 9484802 (Version 1)
Quarter: 2013Q3

REPORT INFORMATION
  Report Type: Spontaneous
  Country: US (occurrence: US)
  Receive Date: 20130828
  Receipt Date: 20130828
  Transmission Date: 20140515
  Serious: Yes (Death)
  Sender: FDA-Public Use
  Company Number: US-AMGEN-USASP2010012205

PATIENT
  Age: 63 Year
  Sex: Female

DRUGS (5)
  1. ENBREL [Suspect]
     Indication: PRODUCT USED FOR UNKNOWN INDICATION
     Dosage: 50 MG, QWK
     Route: 065
  2. TRAMADOL HCL [Concomitant]
     Dosage: 50 MG, UNK
     Route: 048
  3. CENTRUM                            /00554501/ [Concomitant]
  4. LISINOPRIL [Concomitant]
     Dosage: 10 MG, UNK
     Route: 048
  5. ZETIA [Concomitant]
     Dosage: 10 MG, UNK
     Route: 048

REACTIONS (1)
  - Death [Fatal]
